FAERS Safety Report 24322719 (Version 2)
Quarter: 2024Q4

REPORT INFORMATION
  Report Type: Spontaneous
  Country: HR (occurrence: HR)
  Receive Date: 20240916
  Receipt Date: 20241007
  Transmission Date: 20250114
  Serious: Yes (Other)
  Sender: MACLEODS
  Company Number: HR-MACLEODS PHARMA-MAC2024049281

PATIENT

DRUGS (16)
  1. ARIPIPRAZOLE [Suspect]
     Active Substance: ARIPIPRAZOLE
     Indication: Psychotic disorder
     Route: 048
  2. ARIPIPRAZOLE [Suspect]
     Active Substance: ARIPIPRAZOLE
     Indication: Schizophrenia
     Dosage: LONG-ACTING INJECTION
     Route: 030
  3. OLANZAPINE [Suspect]
     Active Substance: OLANZAPINE
     Indication: Psychotic disorder
     Dosage: (10+0+15 MG/DAY ORALLY)
     Route: 048
  4. OLANZAPINE [Suspect]
     Active Substance: OLANZAPINE
     Dosage: (10+0+15 MG/DAY ORALLY)
     Route: 048
  5. CARBAMAZEPINE [Suspect]
     Active Substance: CARBAMAZEPINE
     Indication: Psychotic disorder
     Dosage: 400 MG IN THE MORNING ORALLY
     Route: 048
     Dates: end: 2021
  6. CARBAMAZEPINE [Suspect]
     Active Substance: CARBAMAZEPINE
     Indication: Schizophrenia
  7. BISOPROLOL [Suspect]
     Active Substance: BISOPROLOL\BISOPROLOL FUMARATE
     Indication: Schizophrenia
     Dosage: (5 MG IN THE MORNING ORALLY)
     Route: 048
  8. METOCLOPRAMIDE [Suspect]
     Active Substance: METOCLOPRAMIDE
     Indication: Schizophrenia
     Dosage: (10 MG IN THE MORNING ORALLY)
     Route: 048
  9. RISPERIDONE [Suspect]
     Active Substance: RISPERIDONE
     Indication: Psychotic disorder
     Dosage: (2+0+2 MG/DAY ORALLY)
     Route: 048
  10. RISPERIDONE [Suspect]
     Active Substance: RISPERIDONE
     Indication: Schizophrenia
  11. LEVOMEPROMAZINE [Suspect]
     Active Substance: LEVOMEPROMAZINE
     Indication: Psychotic disorder
     Dosage: 25 MG/DAY PER NEED ORALLY
     Route: 048
  12. ALPRAZOLAM [Suspect]
     Active Substance: ALPRAZOLAM
     Indication: Psychotic disorder
     Dosage: (0.5 MG IN THE MORNING ORALLY)
     Route: 048
  13. ALPRAZOLAM [Suspect]
     Active Substance: ALPRAZOLAM
     Indication: Schizophrenia
  14. BIPERIDEN [Suspect]
     Active Substance: BIPERIDEN
     Indication: Psychotic disorder
     Dosage: PER NEED ORALLY
     Route: 048
  15. BIPERIDEN [Suspect]
     Active Substance: BIPERIDEN
     Indication: Schizophrenia
  16. OXAZEPAM [Concomitant]
     Active Substance: OXAZEPAM
     Indication: Schizophrenia
     Dosage: 15-15-30 MG/DAY ORALLY
     Route: 048

REACTIONS (10)
  - Hallucination, auditory [Recovered/Resolved]
  - Decreased appetite [Recovered/Resolved]
  - Anxiety [Recovered/Resolved]
  - Anhedonia [Recovered/Resolved]
  - Sleep disorder [Recovered/Resolved]
  - Antipsychotic drug level decreased [Not Recovered/Not Resolved]
  - Self-injurious ideation [Recovered/Resolved]
  - Drug interaction [Recovered/Resolved]
  - Drug ineffective [Recovered/Resolved]
  - Drug-genetic interaction [Recovered/Resolved]

NARRATIVE: CASE EVENT DATE: 20211101
